FAERS Safety Report 13188547 (Version 1)
Quarter: 2017Q1

REPORT INFORMATION
  Report Type: Spontaneous
  Country: US (occurrence: US)
  Receive Date: 20170206
  Receipt Date: 20170206
  Transmission Date: 20170428
  Serious: Yes (Hospitalization, Other)
  Sender: FDA-Public Use
  Company Number: US-PFIZER INC-2017047128

PATIENT
  Age: 50 Year
  Sex: Female

DRUGS (16)
  1. ACYCLOVIR. [Concomitant]
     Active Substance: ACYCLOVIR
     Dosage: 400 MG, UNK
  2. BETAMETH [Concomitant]
     Dosage: UNK
  3. GABAPENTIN. [Concomitant]
     Active Substance: GABAPENTIN
     Dosage: 100 MG, UNK
  4. IBUPROFEN. [Concomitant]
     Active Substance: IBUPROFEN
     Dosage: 600 MG, UNK
  5. ONDANSETRON [Concomitant]
     Active Substance: ONDANSETRON
     Dosage: UNK
  6. CLOTRIMAZOLE AND BETAMETHASONE DIPROPIONATE [Concomitant]
     Active Substance: BETAMETHASONE\BETAMETHASONE DIPROPIONATE\CLOTRIMAZOLE
     Dosage: UNK
  7. DIAZEPAM. [Concomitant]
     Active Substance: DIAZEPAM
     Dosage: 5 MG, UNK
  8. DIPHENHYDRAMIN [Concomitant]
     Active Substance: DIPHENHYDRAMINE
     Dosage: UNK
  9. SOLU-MEDROL [Concomitant]
     Active Substance: METHYLPREDNISOLONE SODIUM SUCCINATE
     Dosage: 125 MG, UNK
  10. XELJANZ XR [Suspect]
     Active Substance: TOFACITINIB CITRATE
     Indication: RHEUMATOID ARTHRITIS
     Dosage: 11 MG, DAILY
     Route: 048
     Dates: start: 20161230
  11. FLUTICASONE. [Concomitant]
     Active Substance: FLUTICASONE
     Dosage: UNK
  12. REMICADE [Concomitant]
     Active Substance: INFLIXIMAB
     Dosage: 100 MG, UNK
  13. LISINOPRIL. [Concomitant]
     Active Substance: LISINOPRIL
     Dosage: 40 MG, UNK
  14. NYSTATIN. [Concomitant]
     Active Substance: NYSTATIN
     Dosage: UNK
  15. OMEPRAZOLE. [Concomitant]
     Active Substance: OMEPRAZOLE
     Dosage: 40 MG, UNK
  16. PREDNISONE. [Concomitant]
     Active Substance: PREDNISONE
     Dosage: 5 MG, UNK

REACTIONS (1)
  - Chest pain [Not Recovered/Not Resolved]

NARRATIVE: CASE EVENT DATE: 20170120
